FAERS Safety Report 20688049 (Version 1)
Quarter: 2022Q2

REPORT INFORMATION
  Report Type: Spontaneous
  Country: US (occurrence: US)
  Receive Date: 20220408
  Receipt Date: 20220408
  Transmission Date: 20220720
  Serious: Yes (Other)
  Sender: FDA-Public Use
  Company Number: US-TWI PHARMACEUTICAL, INC-2022SCTW000035

PATIENT

DRUGS (3)
  1. METOPROLOL SUCCINATE [Interacting]
     Active Substance: METOPROLOL SUCCINATE
     Indication: Cardiac failure
     Dosage: UNK
     Route: 065
  2. REMDESIVIR [Interacting]
     Active Substance: REMDESIVIR
     Indication: COVID-19 pneumonia
     Route: 065
  3. DEXAMETHASONE [Concomitant]
     Active Substance: DEXAMETHASONE
     Indication: COVID-19 pneumonia
     Route: 065

REACTIONS (3)
  - Drug interaction [Unknown]
  - Bradycardia [Recovered/Resolved]
  - Atrioventricular block second degree [Recovered/Resolved]
